FAERS Safety Report 8430480-6 (Version None)
Quarter: 2012Q2

REPORT INFORMATION
  Report Type: 
  Country: None (occurrence: None)
  Receive Date: 20120612
  Receipt Date: 20120528
  Transmission Date: 20120825
  Serious: No
  Sender: FDA-Public Use
  Company Number: US-ASTRAZENECA-2012SE36005

PATIENT
  Sex: Female
  Weight: 105.2 kg

DRUGS (6)
  1. ANASTROZOLE [Suspect]
     Indication: BREAST CANCER
     Route: 048
     Dates: start: 20090101, end: 20120524
  2. ATENOLOL [Concomitant]
  3. HYDROCHLOROTHIAZIDE [Concomitant]
  4. CLONIDINE [Concomitant]
  5. OXYBUTYNIN [Concomitant]
  6. NIFEDIPINE [Concomitant]

REACTIONS (5)
  - MUSCULOSKELETAL PAIN [None]
  - PARAESTHESIA [None]
  - AMNESIA [None]
  - BACK PAIN [None]
  - DRUG DOSE OMISSION [None]
